FAERS Safety Report 16679103 (Version 1)
Quarter: 2019Q3

REPORT INFORMATION
  Report Type: Spontaneous
  Country: CN (occurrence: CN)
  Receive Date: 20190807
  Receipt Date: 20190807
  Transmission Date: 20191004
  Serious: Yes (Other)
  Sender: FDA-Public Use
  Company Number: CN-BAXTER-2019BAX015144

PATIENT
  Age: 65 Year
  Sex: Male
  Weight: 62 kg

DRUGS (2)
  1. ENDOXAN [Suspect]
     Active Substance: CYCLOPHOSPHAMIDE
     Indication: RENAL IMPAIRMENT
     Dosage: CYCLOPHOSPHAMIDE + 0.9% SODIUM CHLORIDE 500 ML
     Route: 041
     Dates: start: 20190721, end: 20190721
  2. 0.9% SODIUM CHLORIDE INJECTION [Suspect]
     Active Substance: SODIUM CHLORIDE
     Indication: MEDICATION DILUTION
     Dosage: CYCLOPHOSPHAMIDE + 0.9% SODIUM CHLORIDE
     Route: 041
     Dates: start: 20190721, end: 20190721

REACTIONS (4)
  - Fatigue [Unknown]
  - Generalised oedema [Unknown]
  - Depressed mood [Unknown]
  - Vomiting [Recovering/Resolving]

NARRATIVE: CASE EVENT DATE: 20190721
